FAERS Safety Report 10153313 (Version 2)
Quarter: 2014Q2

REPORT INFORMATION
  Report Type: Spontaneous
  Country: AU (occurrence: AU)
  Receive Date: 20140505
  Receipt Date: 20140505
  Transmission Date: 20141212
  Serious: Yes (Other)
  Sender: FDA-Public Use
  Company Number: PHHY2014AU044405

PATIENT
  Age: 64 Year
  Sex: Female
  Weight: 63.1 kg

DRUGS (11)
  1. ACLASTA [Suspect]
     Indication: OSTEOPENIA
     Dosage: 5 MG, UNK
     Route: 042
     Dates: start: 20120710
  2. ACLASTA [Suspect]
     Dosage: 5 MG, UNK
     Route: 042
     Dates: start: 20140408
  3. RAMIPRIL [Concomitant]
     Indication: HYPERTENSION
     Dosage: 1 DF, QD
  4. PLAQUENIL [Concomitant]
     Indication: ANTIPHOSPHOLIPID SYNDROME
     Dosage: 1 MG, BID
  5. OSTELIN VITAMIN D [Concomitant]
     Indication: OSTEOPENIA
     Dosage: 1 DF, QD
  6. ARIMIDEX [Concomitant]
     Indication: BREAST CANCER
     Dosage: 1 DF, QD
  7. FRUSEMIDE [Concomitant]
     Dosage: 40 MG, 2ND DLY
  8. PROLIA [Concomitant]
     Indication: OSTEOPENIA
     Dosage: 1 DF, EVERY 6 MONTHS
     Route: 058
  9. WARFARIN SODIUM [Concomitant]
     Indication: ANTIPHOSPHOLIPID SYNDROME
     Dosage: 8.5 MG, NOCTE M.D.U
     Dates: start: 20111007
  10. SOMAC [Concomitant]
     Indication: GASTROOESOPHAGEAL REFLUX DISEASE
     Dosage: 1 DF, QD
     Dates: start: 20140114
  11. LANTUS [Concomitant]
     Indication: TYPE 2 DIABETES MELLITUS
     Dosage: 20 U, MANE
     Dates: start: 20140408

REACTIONS (3)
  - Weight decreased [Unknown]
  - Nausea [Not Recovered/Not Resolved]
  - Vomiting [Not Recovered/Not Resolved]
